FAERS Safety Report 19616048 (Version 2)
Quarter: 2021Q3

REPORT INFORMATION
  Report Type: Report from Study
  Country: US (occurrence: US)
  Receive Date: 20210727
  Receipt Date: 20210802
  Transmission Date: 20211014
  Serious: Yes (Hospitalization, Other)
  Sender: FDA-Public Use
  Company Number: US-TAKEDA-US202023983

PATIENT
  Age: 62 Year
  Sex: Female

DRUGS (3)
  1. CUVITRU [Suspect]
     Active Substance: HUMAN IMMUNOGLOBULIN G
     Indication: HYPOGAMMAGLOBULINAEMIA
  2. CUVITRU [Suspect]
     Active Substance: HUMAN IMMUNOGLOBULIN G
     Indication: SELECTIVE IGG SUBCLASS DEFICIENCY
  3. CUVITRU [Suspect]
     Active Substance: HUMAN IMMUNOGLOBULIN G
     Indication: PRIMARY IMMUNODEFICIENCY SYNDROME
     Dosage: UNK, UNKNOWN
     Route: 065
     Dates: start: 20191214

REACTIONS (11)
  - Muscle strain [Unknown]
  - Eye disorder [Unknown]
  - Pulmonary thrombosis [Unknown]
  - Fatigue [Unknown]
  - Multiple allergies [Unknown]
  - Thrombosis [Recovering/Resolving]
  - COVID-19 immunisation [Unknown]
  - Fall [Unknown]
  - Contusion [Unknown]
  - Limb injury [Unknown]
  - Nasopharyngitis [Unknown]

NARRATIVE: CASE EVENT DATE: 20210719
